FAERS Safety Report 7122699-1 (Version None)
Quarter: 2010Q4

REPORT INFORMATION
  Report Type: 
  Country: None (occurrence: None)
  Receive Date: 20101124
  Receipt Date: 20101025
  Transmission Date: 20110411
  Serious: Yes (Hospitalization)
  Sender: FDA-Public Use
  Company Number: BR-ELI_LILLY_AND_COMPANY-BR201010006098

PATIENT
  Sex: Female
  Weight: 50 kg

DRUGS (1)
  1. FORTEO [Suspect]
     Dosage: UNK, DAILY (1/D)
     Route: 065
     Dates: start: 20091001, end: 20100601

REACTIONS (3)
  - BODY HEIGHT DECREASED [None]
  - LUNG DISORDER [None]
  - MOVEMENT DISORDER [None]
